FAERS Safety Report 10922269 (Version 1)
Quarter: 2015Q1

REPORT INFORMATION
  Report Type: Spontaneous
  Country: ES (occurrence: None)
  Receive Date: 20150312
  Receipt Date: 20150312
  Transmission Date: 20150721
  Serious: Yes (Death, Disabling, Other)
  Sender: FDA-Public Use
  Company Number: 2270704

PATIENT
  Age: 67 Year
  Sex: Female

DRUGS (7)
  1. CETUXIMAB [Suspect]
     Active Substance: CETUXIMAB
     Indication: COLON CANCER
     Dosage: CYCLICAL
  2. OXALIPLATIN. [Suspect]
     Active Substance: OXALIPLATIN
     Indication: COLON CANCER
     Dosage: CYCLICAL
  3. BEVACIZUMAB [Suspect]
     Active Substance: BEVACIZUMAB
     Indication: COLON CANCER
     Dosage: CYCLICAL
     Dates: start: 20100427
  4. CAPECITABINE. [Suspect]
     Active Substance: CAPECITABINE
     Indication: COLON CANCER
     Dosage: CYCLICAL
  5. RALTITREXED DISODIUM [Suspect]
     Active Substance: RALTITREXED
     Indication: COLON CANCER
     Dosage: 3 MG/M 2 MILLIGRAM9S)/SQ. METER, (1 DAY), UNKNOWN
     Dates: start: 20101013
  6. IRINOTECAN HYDROCHLORIDE. [Suspect]
     Active Substance: IRINOTECAN HYDROCHLORIDE
     Indication: COLON CANCER
     Dosage: CYCLICAL
     Dates: start: 20100427
  7. CAPECITABINE. [Suspect]
     Active Substance: CAPECITABINE
     Dosage: CYCLICAL

REACTIONS (3)
  - Neoplasm progression [None]
  - Guillain-Barre syndrome [None]
  - Pulmonary embolism [None]
